FAERS Safety Report 8116580-9 (Version None)
Quarter: 2012Q1

REPORT INFORMATION
  Report Type: 
  Country: None (occurrence: None)
  Receive Date: 20120206
  Receipt Date: 20120202
  Transmission Date: 20120608
  Serious: Yes (Other)
  Sender: FDA-Public Use
  Company Number: US-PFIZER INC-2012029484

PATIENT
  Sex: Male
  Weight: 81.633 kg

DRUGS (5)
  1. ACETYLSALICYLIC ACID [Concomitant]
     Dosage: UNK
  2. JANUVIA [Concomitant]
     Indication: DIABETES MELLITUS
     Dosage: UNK
  3. PREPARATION H [Suspect]
     Indication: HAEMORRHOIDS
     Dosage: UNK, AS NEEDED
     Route: 054
     Dates: start: 20120129, end: 20120131
  4. LISINOPRIL [Concomitant]
     Indication: HYPERTENSION
     Dosage: UNK
  5. TOPROL-XL [Concomitant]
     Indication: HYPERTENSION
     Dosage: UNK

REACTIONS (2)
  - DEFAECATION URGENCY [None]
  - RECTAL HAEMORRHAGE [None]
